FAERS Safety Report 4379928-7 (Version None)
Quarter: 2004Q2

REPORT INFORMATION
  Report Type: 
  Country: None (occurrence: None)
  Receive Date: 20040614
  Receipt Date: 20040603
  Transmission Date: 20050107
  Serious: Yes (Hospitalization)
  Sender: FDA-Public Use
  Company Number: 2004-06-0106

PATIENT
  Age: 25 Year
  Sex: Female

DRUGS (1)
  1. TEMODAL [Suspect]
     Dosage: 200 MG/M2 ORAL
     Route: 048

REACTIONS (2)
  - FEBRILE NEUTROPENIA [None]
  - THROMBOCYTOPENIA [None]
